FAERS Safety Report 5925709-X (Version None)
Quarter: 2008Q4

REPORT INFORMATION
  Report Type: 
  Country: None (occurrence: None)
  Receive Date: 20081021
  Receipt Date: 20081016
  Transmission Date: 20090506
  Serious: Yes (Death, Hospitalization, Other)
  Sender: FDA-Public Use
  Company Number: ES-CELGENEUS-144-21880-08080725

PATIENT
  Sex: Male

DRUGS (2)
  1. REVLIMID [Suspect]
     Indication: MYELOFIBROSIS
     Route: 065
     Dates: start: 20071213, end: 20071227
  2. CLEXANE [Concomitant]
     Route: 065

REACTIONS (6)
  - FEBRILE NEUTROPENIA [None]
  - MYELOFIBROSIS [None]
  - NEUTROPENIA [None]
  - PNEUMONIA [None]
  - SEPTIC SHOCK [None]
  - THROMBOCYTOPENIA [None]
